FAERS Safety Report 21302605 (Version 1)
Quarter: 2022Q3

REPORT INFORMATION
  Report Type: Spontaneous
  Country: US (occurrence: US)
  Receive Date: 20220907
  Receipt Date: 20220907
  Transmission Date: 20221027
  Serious: Yes (Hospitalization)
  Sender: FDA-Public Use
  Company Number: US-AMGEN-USASP2022149529

PATIENT
  Sex: Female

DRUGS (4)
  1. IVABRADINE [Suspect]
     Active Substance: IVABRADINE
     Indication: Atrial tachycardia
     Dosage: 0.22 MILLIGRAM, 0.05 MG/KG/
     Route: 065
  2. IVABRADINE [Suspect]
     Active Substance: IVABRADINE
     Indication: Off label use
  3. AMIODARONE [Concomitant]
     Active Substance: AMIODARONE
     Dosage: 15 MILLIGRAM/KILOGRAM
     Route: 065
  4. AMIODARONE [Concomitant]
     Active Substance: AMIODARONE
     Dosage: 5 MILLIGRAM/KILOGRAM
     Route: 065

REACTIONS (3)
  - Sinus bradycardia [Recovered/Resolved]
  - Accidental overdose [Unknown]
  - Off label use [Unknown]
